FAERS Safety Report 23304031 (Version 2)
Quarter: 2024Q1

REPORT INFORMATION
  Report Type: Spontaneous
  Country: US (occurrence: US)
  Receive Date: 20231218
  Receipt Date: 20240130
  Transmission Date: 20240410
  Serious: No
  Sender: FDA-Public Use
  Company Number: US-SANDOZ-SDZ2023US068169

PATIENT
  Age: 49 Year
  Sex: Male

DRUGS (2)
  1. ENTRESTO [Suspect]
     Active Substance: SACUBITRIL\VALSARTAN
     Indication: Cerebrovascular accident
     Dosage: UNK, BID
     Route: 048
     Dates: start: 202310
  2. METFORMIN [Suspect]
     Active Substance: METFORMIN HYDROCHLORIDE
     Indication: Product used for unknown indication
     Dosage: UNK
     Route: 065

REACTIONS (8)
  - Nausea [Unknown]
  - Dizziness [Unknown]
  - Anxiety [Recovering/Resolving]
  - Hypercoagulation [Unknown]
  - Blood glucose increased [Recovering/Resolving]
  - Adverse drug reaction [Recovering/Resolving]
  - Product dose omission issue [Not Recovered/Not Resolved]
  - Therapy change [Unknown]

NARRATIVE: CASE EVENT DATE: 20231001
